FAERS Safety Report 24261237 (Version 2)
Quarter: 2024Q3

REPORT INFORMATION
  Report Type: Spontaneous
  Country: AT (occurrence: AT)
  Receive Date: 20240829
  Receipt Date: 20240930
  Transmission Date: 20241016
  Serious: No
  Sender: UCB
  Company Number: AT-UCBSA-2024043731

PATIENT

DRUGS (1)
  1. NEUPRO [Suspect]
     Active Substance: ROTIGOTINE
     Indication: Product used for unknown indication
     Dosage: 2 MILLIGRAM, ONCE DAILY (QD)
     Route: 062

REACTIONS (3)
  - Product adhesion issue [Unknown]
  - Drug ineffective [Unknown]
  - Product dose omission issue [Unknown]
